FAERS Safety Report 23321953 (Version 1)
Quarter: 2023Q4

REPORT INFORMATION
  Report Type: Spontaneous
  Country: FR (occurrence: FR)
  Receive Date: 20231220
  Receipt Date: 20231220
  Transmission Date: 20240110
  Serious: Yes (Hospitalization)
  Sender: FDA-Public Use
  Company Number: None

PATIENT
  Age: 47 Year
  Sex: Male
  Weight: 82 kg

DRUGS (1)
  1. CERTICAN [Suspect]
     Active Substance: EVEROLIMUS
     Indication: Renal transplant
     Dosage: 0.75 MG, Q12H
     Route: 048
     Dates: end: 20230710

REACTIONS (2)
  - Tolosa-Hunt syndrome [Recovered/Resolved]
  - IIIrd nerve disorder [Recovered/Resolved]

NARRATIVE: CASE EVENT DATE: 20230610
